FAERS Safety Report 9221493 (Version 1)
Quarter: 2013Q1

REPORT INFORMATION
  Report Type: Spontaneous
  Country: US (occurrence: None)
  Receive Date: 20120831
  Receipt Date: 20120831
  Transmission Date: 20140127
  Serious: No
  Sender: FDA-Public Use
  Company Number: 1000031066

PATIENT
  Age: 80 Year
  Sex: Male

DRUGS (4)
  1. DALIRESP [Suspect]
     Indication: CHRONIC OBSTRUCTIVE PULMONARY DISEASE
     Dosage: 500 MCG ( 500 MCG, 1 IN 1
     Route: 048
     Dates: start: 201205
  2. SPIRIVA ( TIOTROPIUM BROMIDE) ( TIOTROPIUM BROMIDE) [Concomitant]
  3. ALBUTEROL ( ALBUTEROL) ( ALBUTEROL) [Concomitant]
  4. METFORMIN ( METFORMIN) ( METFORMIN) [Concomitant]

REACTIONS (3)
  - Fatigue [None]
  - Insomnia [None]
  - Diarrhoea [None]
